FAERS Safety Report 7088000-7 (Version None)
Quarter: 2010Q4

REPORT INFORMATION
  Report Type: 
  Country: None (occurrence: None)
  Receive Date: 20101001
  Receipt Date: 20100621
  Transmission Date: 20110411
  Serious: No
  Sender: FDA-Public Use
  Company Number: 1000014620

PATIENT
  Age: 79 Year
  Sex: Female

DRUGS (9)
  1. BYSTOLIC [Suspect]
     Indication: HYPERTENSION
     Dosage: 10 MG (10 MG, 1 IN 1 D)
  2. EXFORGE [Concomitant]
  3. TIMOLOL MALEATE [Concomitant]
  4. LIPITOR [Concomitant]
  5. ASPIRIN [Concomitant]
  6. PLAVIX [Concomitant]
  7. CHLORTHALIDONE [Concomitant]
  8. ALPRAZOLAM [Concomitant]
  9. PREDNISONE [Concomitant]

REACTIONS (1)
  - DRY EYE [None]
